FAERS Safety Report 16999611 (Version 1)
Quarter: 2019Q4

REPORT INFORMATION
  Report Type: Spontaneous
  Country: US (occurrence: US)
  Receive Date: 20191105
  Receipt Date: 20191105
  Transmission Date: 20200122
  Serious: Yes (Hospitalization)
  Sender: FDA-Public Use
  Company Number: None

PATIENT
  Age: 54 Year
  Sex: Female

DRUGS (4)
  1. MOXIFLOXACIN TAB 400 MG [Concomitant]
  2. HUMIRA [Suspect]
     Active Substance: ADALIMUMAB
     Indication: COLITIS
     Dosage: ?          OTHER FREQUENCY:EVERY 2 WEEKS;?
     Route: 058
     Dates: start: 20180105
  3. GUAIFENESIN SYP 100/5 ML [Concomitant]
  4. FLONASE ALGY SPR 50 MCG [Concomitant]

REACTIONS (2)
  - Condition aggravated [None]
  - Weight increased [None]
